FAERS Safety Report 5191581-1 (Version None)
Quarter: 2006Q4

REPORT INFORMATION
  Report Type: 
  Country: None (occurrence: None)
  Receive Date: 20061220
  Receipt Date: 20061220
  Transmission Date: 20070319
  Serious: Yes (Death)
  Sender: FDA-Public Use
  Company Number: None

PATIENT
  Age: 72 Year
  Sex: Female
  Weight: 63.5036 kg

DRUGS (1)
  1. TYLENOL [Suspect]

REACTIONS (2)
  - HEPATIC FAILURE [None]
  - INCORRECT DRUG DOSAGE FORM ADMINISTERED [None]
